FAERS Safety Report 8232004-5 (Version None)
Quarter: 2012Q1

REPORT INFORMATION
  Report Type: 
  Country: None (occurrence: None)
  Receive Date: 20120323
  Receipt Date: 20120320
  Transmission Date: 20120608
  Serious: Yes (Death, Other)
  Sender: FDA-Public Use
  Company Number: GB-JNJFOC-20120309568

PATIENT

DRUGS (10)
  1. HEPARIN [Concomitant]
     Indication: THROMBOSIS PROPHYLAXIS
     Route: 065
  2. ASPIRIN [Concomitant]
     Indication: THROMBOSIS PROPHYLAXIS
     Route: 065
  3. NEUPOGEN [Concomitant]
     Route: 065
  4. DEXAMETHASONE [Suspect]
     Indication: MULTIPLE MYELOMA
     Route: 048
  5. ZOLEDRONOC ACID [Suspect]
     Indication: PRODUCT USED FOR UNKNOWN INDICATION
     Route: 065
  6. DOXORUBICIN HCL [Suspect]
     Indication: MULTIPLE MYELOMA
     Route: 042
  7. CYCLOPHOSPHAMIDE [Suspect]
     Indication: MULTIPLE MYELOMA
     Route: 048
  8. VINCRISTINE [Suspect]
     Indication: MULTIPLE MYELOMA
     Route: 065
  9. DISODIUM CLODRONATE [Suspect]
     Indication: PRODUCT USED FOR UNKNOWN INDICATION
     Route: 065
  10. WARFARIN SODIUM [Concomitant]
     Indication: THROMBOSIS PROPHYLAXIS
     Route: 065

REACTIONS (12)
  - HYPOTHYROIDISM [None]
  - INFECTION [None]
  - CONSTIPATION [None]
  - PANCYTOPENIA [None]
  - MULTIPLE MYELOMA [None]
  - PERIPHERAL SENSORY NEUROPATHY [None]
  - BLOOD ALKALINE PHOSPHATASE INCREASED [None]
  - RASH [None]
  - SOMNOLENCE [None]
  - EMBOLISM VENOUS [None]
  - RENAL FAILURE [None]
  - PERIPHERAL MOTOR NEUROPATHY [None]
